FAERS Safety Report 9331748 (Version 1)
Quarter: 2013Q2

REPORT INFORMATION
  Report Type: Spontaneous
  Country: US (occurrence: US)
  Receive Date: 20130605
  Receipt Date: 20130605
  Transmission Date: 20140414
  Serious: No
  Sender: FDA-Public Use
  Company Number: US-ASTRAZENECA-2013SE36258

PATIENT
  Age: 38 Year
  Sex: Male
  Weight: 154.2 kg

DRUGS (6)
  1. PULMICORT FLEXHALER [Suspect]
     Indication: ASTHMA
     Route: 055
     Dates: start: 201304
  2. PULMICORT FLEXHALER [Suspect]
     Indication: LUNG INFECTION
     Route: 055
     Dates: start: 201304
  3. LISINOPRIL [Suspect]
     Route: 048
  4. PROAIR [Concomitant]
  5. METFORMIN [Concomitant]
     Indication: DIABETES MELLITUS
  6. HTCZ [Concomitant]

REACTIONS (3)
  - Chest pain [Unknown]
  - Cough [Unknown]
  - Dyspnoea [Unknown]
